FAERS Safety Report 9331301 (Version 3)
Quarter: 2013Q4

REPORT INFORMATION
  Report Type: Spontaneous
  Country: US (occurrence: US)
  Receive Date: 20130605
  Receipt Date: 20131223
  Transmission Date: 20140711
  Serious: Yes (Hospitalization, Other)
  Sender: FDA-Public Use
  Company Number: US-PFIZER INC-2013170246

PATIENT
  Age: 63 Year
  Sex: Female
  Weight: 81.63 kg

DRUGS (6)
  1. LYRICA [Suspect]
     Indication: PAIN
     Dosage: 200 MG, 2X/DAY
     Route: 048
     Dates: start: 2003, end: 2013
  2. LYRICA [Suspect]
     Indication: COMPLEX REGIONAL PAIN SYNDROME
  3. OXYCODONE [Concomitant]
     Dosage: 40 MG, 2X/DAY
  4. METOPROLOL [Concomitant]
     Dosage: UNK
  5. SYNTHROID [Concomitant]
     Dosage: UNK
  6. OXYCONTIN [Concomitant]
     Indication: FRACTURED SACRUM
     Dosage: UNK

REACTIONS (6)
  - Osteomyelitis [Unknown]
  - Pharyngitis streptococcal [Recovering/Resolving]
  - Feeling abnormal [Unknown]
  - Pain [Unknown]
  - Activities of daily living impaired [Unknown]
  - Gait disturbance [Unknown]
